FAERS Safety Report 6215126-X (Version None)
Quarter: 2009Q2

REPORT INFORMATION
  Report Type: 
  Country: None (occurrence: None)
  Receive Date: 20090601
  Receipt Date: 20081031
  Transmission Date: 20091009
  Serious: Yes (Hospitalization)
  Sender: FDA-Public Use
  Company Number: 280927

PATIENT
  Age: 56 Year
  Sex: Female
  Weight: 93 kg

DRUGS (14)
  1. ACTIVELLA [Suspect]
     Indication: HOT FLUSH
     Dosage: ORAL
     Route: 048
     Dates: start: 20020101, end: 20030101
  2. PREMPRO [Suspect]
     Indication: HOT FLUSH
     Dates: start: 19960101, end: 20020101
  3. PREMARIN [Suspect]
     Indication: HOT FLUSH
     Dates: start: 19940101, end: 19960101
  4. PROVERA [Suspect]
     Indication: HOT FLUSH
     Dates: start: 19940101, end: 19960101
  5. ATENOLOL [Concomitant]
  6. AMARYL [Concomitant]
  7. PRILOSEC /00661201/(OMEPRAZOLE) [Concomitant]
  8. SINGULAIR [Concomitant]
  9. FEMARA [Concomitant]
  10. VICODIN [Concomitant]
  11. ADVAIR DISKUS 100/50 [Concomitant]
  12. PRAVACHOL [Concomitant]
  13. ZOCOR [Concomitant]
  14. ALBUTEROL /00139501/ (SALBUTAMOL) [Concomitant]

REACTIONS (1)
  - BREAST CANCER [None]
